FAERS Safety Report 8072753-5 (Version None)
Quarter: 2012Q1

REPORT INFORMATION
  Report Type: 
  Country: None (occurrence: None)
  Receive Date: 20120126
  Receipt Date: 20120117
  Transmission Date: 20120608
  Serious: Yes (Other)
  Sender: FDA-Public Use
  Company Number: US-JNJFOC-20120106910

PATIENT
  Sex: Male
  Weight: 97.98 kg

DRUGS (10)
  1. SIMPONI [Suspect]
     Indication: RHEUMATOID ARTHRITIS
     Route: 058
     Dates: start: 20060101, end: 20090101
  2. DIOVAN [Concomitant]
     Indication: BLOOD CHOLESTEROL
     Route: 048
     Dates: start: 20010101
  3. FISH OIL [Concomitant]
     Route: 048
     Dates: start: 20040101
  4. ZOCOR [Concomitant]
     Indication: BLOOD PRESSURE
     Route: 048
     Dates: start: 20010101
  5. METHOTREXATE [Suspect]
     Indication: RHEUMATOID ARTHRITIS
     Route: 048
     Dates: start: 20040101, end: 20111201
  6. PLAVIX [Concomitant]
     Indication: STENT PLACEMENT
     Route: 048
     Dates: start: 20020101
  7. FOLIC ACID [Concomitant]
     Dates: start: 20040101
  8. ASPIRIN [Concomitant]
     Indication: STENT PLACEMENT
     Route: 048
     Dates: start: 20010101
  9. RANITIDINE [Concomitant]
     Indication: GASTROOESOPHAGEAL REFLUX DISEASE
     Route: 048
     Dates: start: 20010101
  10. ZETIA [Concomitant]
     Indication: BLOOD PRESSURE
     Route: 048
     Dates: start: 20010101

REACTIONS (5)
  - NASOPHARYNGITIS [None]
  - DECREASED IMMUNE RESPONSIVENESS [None]
  - INFLUENZA [None]
  - PALINDROMIC RHEUMATISM [None]
  - GOUT [None]
